FAERS Safety Report 25080308 (Version 3)
Quarter: 2025Q2

REPORT INFORMATION
  Report Type: Report from Study
  Country: US (occurrence: US)
  Receive Date: 20250315
  Receipt Date: 20250506
  Transmission Date: 20250717
  Serious: Yes (Hospitalization, Other)
  Sender: ABBVIE
  Company Number: US-ABBVIE-6173405

PATIENT
  Age: 69 Year
  Sex: Female
  Weight: 56.699 kg

DRUGS (2)
  1. HUMIRA [Suspect]
     Active Substance: ADALIMUMAB
     Indication: Colitis ulcerative
     Dosage: CITRATE FREE?LAST ADMIN DATE- 2024
     Route: 058
     Dates: start: 20240809
  2. SYNTHROID [Concomitant]
     Active Substance: LEVOTHYROXINE SODIUM
     Indication: Autoimmune thyroiditis

REACTIONS (5)
  - Coronary artery thrombosis [Recovering/Resolving]
  - Pulmonary embolism [Recovering/Resolving]
  - Cardiac ventricular thrombosis [Unknown]
  - Dyspnoea [Recovering/Resolving]
  - Pulmonary thrombosis [Unknown]

NARRATIVE: CASE EVENT DATE: 20250201
